FAERS Safety Report 17300778 (Version 1)
Quarter: 2020Q1

REPORT INFORMATION
  Report Type: Spontaneous
  Country: CA (occurrence: CA)
  Receive Date: 20200122
  Receipt Date: 20200122
  Transmission Date: 20200409
  Serious: Yes (Hospitalization)
  Sender: FDA-Public Use
  Company Number: CA-JNJFOC-20200125681

PATIENT
  Age: 73 Year
  Sex: Male

DRUGS (1)
  1. INVOKANA [Suspect]
     Active Substance: CANAGLIFLOZIN
     Indication: BLOOD GLUCOSE ABNORMAL
     Route: 048

REACTIONS (3)
  - Euglycaemic diabetic ketoacidosis [Unknown]
  - Off label use [Unknown]
  - Incorrect dose administered [Unknown]
